FAERS Safety Report 12721987 (Version 2)
Quarter: 2016Q3

REPORT INFORMATION
  Report Type: Spontaneous
  Country: CN (occurrence: CN)
  Receive Date: 20160907
  Receipt Date: 20160908
  Transmission Date: 20161109
  Serious: Yes (Hospitalization)
  Sender: FDA-Public Use
  Company Number: CN-GLAXOSMITHKLINE-CN2016GSK127251

PATIENT
  Age: 13 Year
  Sex: Female
  Weight: 53 kg

DRUGS (5)
  1. LAMICTAL [Suspect]
     Active Substance: LAMOTRIGINE
     Dosage: 25 MG, QD
     Dates: start: 20111220, end: 20120103
  2. LAMICTAL [Suspect]
     Active Substance: LAMOTRIGINE
     Indication: EPILEPSY
     Dosage: 12.5 MG, QD
     Dates: start: 20111206, end: 20111220
  3. LAMICTAL [Suspect]
     Active Substance: LAMOTRIGINE
     Dosage: UNK
  4. LAMICTAL [Suspect]
     Active Substance: LAMOTRIGINE
     Dosage: 25 MG, BID
     Dates: start: 20120116
  5. LAMICTAL [Suspect]
     Active Substance: LAMOTRIGINE
     Dosage: 50 MG, BID

REACTIONS (11)
  - Abdominal distension [Recovered/Resolved]
  - Xanthochromia [Recovered/Resolved]
  - Ocular icterus [Recovered/Resolved]
  - Nausea [Recovered/Resolved]
  - Hepatic pain [Recovered/Resolved]
  - Decreased appetite [Recovered/Resolved]
  - Hepatic function abnormal [Recovered/Resolved]
  - Pruritus [Recovered/Resolved]
  - Tonsillar hypertrophy [Recovered/Resolved]
  - Jaundice [Recovered/Resolved]
  - Abdominal tenderness [Recovered/Resolved]
